FAERS Safety Report 19373946 (Version 2)
Quarter: 2021Q2

REPORT INFORMATION
  Report Type: Other
  Country: IE (occurrence: IE)
  Receive Date: 20210603
  Receipt Date: 20210607
  Transmission Date: 20210717
  Serious: Yes (Hospitalization)
  Sender: FDA-Public Use
  Company Number: IE-B.BRAUN MEDICAL INC.-2112327

PATIENT
  Sex: Female

DRUGS (2)
  1. THEOPHYLLINE IN 5% DEXTROSE INJECTIONS USP 0264?9554?10 0264?9558?10 ( [Suspect]
     Active Substance: DEXTROSE MONOHYDRATE\THEOPHYLLINE\THEOPHYLLINE ANHYDROUS
  2. LANSOPRAZOLE. [Concomitant]
     Active Substance: LANSOPRAZOLE

REACTIONS (2)
  - Status epilepticus [None]
  - Amnestic disorder [None]
